FAERS Safety Report 24681951 (Version 1)
Quarter: 2024Q4

REPORT INFORMATION
  Report Type: Spontaneous
  Country: DE (occurrence: DE)
  Receive Date: 20241130
  Receipt Date: 20241130
  Transmission Date: 20250115
  Serious: Yes (Life-Threatening, Hospitalization, Other)
  Sender: ALEXION PHARMACEUTICALS
  Company Number: DE-DCGMA-24204309

PATIENT
  Age: 66 Year
  Weight: 105 kg

DRUGS (18)
  1. XIGDUO XR [Suspect]
     Active Substance: DAPAGLIFLOZIN PROPANEDIOL\METFORMIN HYDROCHLORIDE
     Indication: Diabetes mellitus
     Dosage: UNK UNK, BID
  2. XIGDUO XR [Suspect]
     Active Substance: DAPAGLIFLOZIN PROPANEDIOL\METFORMIN HYDROCHLORIDE
     Dosage: UNK UNK, BID
  3. XIGDUO XR [Suspect]
     Active Substance: DAPAGLIFLOZIN PROPANEDIOL\METFORMIN HYDROCHLORIDE
     Dosage: UNK UNK, BID
  4. XIGDUO XR [Suspect]
     Active Substance: DAPAGLIFLOZIN PROPANEDIOL\METFORMIN HYDROCHLORIDE
     Dosage: UNK UNK, BID
  5. METOPROLOL [Concomitant]
     Active Substance: METOPROLOL
     Dosage: 1/2-0-1/2
  6. METOPROLOL [Concomitant]
     Active Substance: METOPROLOL
     Dosage: 1/2-0-1/2
  7. HYDROCHLOROTHIAZIDE\RAMIPRIL [Concomitant]
     Active Substance: HYDROCHLOROTHIAZIDE\RAMIPRIL
     Dosage: 5MG/20MG
  8. HYDROCHLOROTHIAZIDE\RAMIPRIL [Concomitant]
     Active Substance: HYDROCHLOROTHIAZIDE\RAMIPRIL
     Dosage: 5MG/20MG
  9. LERCANIDIPIN-HCL AL [Concomitant]
     Dosage: DAILY DOSE: 10 MG EVERY 1 DAY
  10. LERCANIDIPIN-HCL AL [Concomitant]
     Dosage: DAILY DOSE: 10 MG EVERY 1 DAY
  11. EZETIMIBE\ROSUVASTATIN [Concomitant]
     Active Substance: EZETIMIBE\ROSUVASTATIN
     Dosage: 20 MG/10 MG
  12. EZETIMIBE\ROSUVASTATIN [Concomitant]
     Active Substance: EZETIMIBE\ROSUVASTATIN
     Dosage: 20 MG/10 MG
  13. ALLOPURINOL INDOCO [Concomitant]
     Dosage: DAILY DOSE: 300 MG EVERY 1 DAY
  14. ALLOPURINOL INDOCO [Concomitant]
     Dosage: DAILY DOSE: 300 MG EVERY 1 DAY
  15. ALLOPURINOL INDOCO [Concomitant]
     Dosage: 300 MILLIGRAM, QD
  16. ALLOPURINOL INDOCO [Concomitant]
     Dosage: 300 MILLIGRAM, QD
  17. TRULICITY [Concomitant]
     Active Substance: DULAGLUTIDE
  18. TRULICITY [Concomitant]
     Active Substance: DULAGLUTIDE

REACTIONS (1)
  - Necrotising fasciitis [Not Recovered/Not Resolved]
